FAERS Safety Report 7283699-4 (Version None)
Quarter: 2011Q1

REPORT INFORMATION
  Report Type: 
  Country: None (occurrence: None)
  Receive Date: 20110209
  Receipt Date: 20110201
  Transmission Date: 20110831
  Serious: Yes (Other)
  Sender: FDA-Public Use
  Company Number: GB-B.I. PHARMACEUTICALS,INC./RIDGEFIELD-2011-UK-00021UK

PATIENT
  Age: 79 Year
  Sex: Female
  Weight: 83.2 kg

DRUGS (8)
  1. LORATADINE [Concomitant]
     Indication: SEASONAL ALLERGY
     Dosage: 10 MG
     Route: 048
     Dates: start: 20060101
  2. METFORMIN HCL [Concomitant]
     Indication: DIABETES MELLITUS
     Dosage: 500 MG
     Route: 048
     Dates: start: 20010101
  3. SERETIDE [Concomitant]
     Indication: CHRONIC OBSTRUCTIVE PULMONARY DISEASE
     Dosage: 250MCG X 4 PUFFS
     Route: 055
     Dates: start: 20060101
  4. GLICLAZIDE M/R [Concomitant]
     Indication: DIABETES MELLITUS
     Dosage: 30MG X 2
     Route: 048
     Dates: start: 20070101
  5. SPIRIVA RESPIMAT [Suspect]
     Indication: CHRONIC OBSTRUCTIVE PULMONARY DISEASE
     Dosage: 2 PUFFS MORNING
     Route: 055
     Dates: start: 20101207, end: 20101216
  6. ALENDRONIC ACID [Concomitant]
     Indication: OSTEOPOROSIS
     Dosage: 70 MG
     Route: 048
     Dates: start: 20090101
  7. SOLPADOL [Concomitant]
     Indication: OSTEOARTHRITIS
     Dosage: 30/500 QDS
     Route: 048
     Dates: start: 20020101
  8. BENDROFLUMETHIAZIDE [Concomitant]
     Indication: HYPERTENSION
     Dosage: 2.5 MG
     Dates: start: 19990101

REACTIONS (7)
  - PHARYNGEAL OEDEMA [None]
  - RASH GENERALISED [None]
  - PRURITUS [None]
  - NAIL BED INFLAMMATION [None]
  - HYPERSENSITIVITY [None]
  - OEDEMA MOUTH [None]
  - ABDOMINAL PAIN UPPER [None]
